FAERS Safety Report 15143269 (Version 1)
Quarter: 2018Q3

REPORT INFORMATION
  Report Type: Spontaneous
  Country: US (occurrence: US)
  Receive Date: 20180618
  Receipt Date: 20180618
  Transmission Date: 20181010
  Serious: No
  Sender: FDA-Public Use
  Company Number: None

PATIENT
  Age: 24 Year
  Sex: Female

DRUGS (1)
  1. MAKENA [Suspect]
     Active Substance: HYDROXYPROGESTERONE CAPROATE
     Indication: PREMATURE LABOUR
     Dosage: ?          OTHER DOSE:275MG OR 1.1ML;?
     Route: 058
     Dates: start: 20180524, end: 20180524

REACTIONS (3)
  - Loss of consciousness [None]
  - Pain in extremity [None]
  - Device use issue [None]

NARRATIVE: CASE EVENT DATE: 20180524
